FAERS Safety Report 20195448 (Version 3)
Quarter: 2022Q4

REPORT INFORMATION
  Report Type: Spontaneous
  Country: US (occurrence: US)
  Receive Date: 20211216
  Receipt Date: 20221221
  Transmission Date: 20230113
  Serious: Yes (Hospitalization)
  Sender: FDA-Public Use
  Company Number: US-PARI RESPIRATORY EQUIPMENT, INC.-2021PAR00067

PATIENT
  Age: 30 Year
  Sex: Male

DRUGS (3)
  1. KITABIS PAK [Suspect]
     Active Substance: TOBRAMYCIN
     Indication: Cystic fibrosis
     Dosage: 300 MG/ 5 ML (1 VIAL)  VIA NEBULIZER, 2X/DAY FOR 4 WEEKS ON AND 4 WEEKS OFF
     Dates: start: 20171212
  2. KITABIS PAK [Suspect]
     Active Substance: TOBRAMYCIN
     Dosage: 300 MG/5 ML (1 VIAL) VIA NEBULIZER, 2X/DAY FOR 4 WEEKS ON AND 4 WEEKS OFF
  3. PULMOZYME [Concomitant]
     Active Substance: DORNASE ALFA

REACTIONS (2)
  - Furuncle [Unknown]
  - Pneumonia [Unknown]

NARRATIVE: CASE EVENT DATE: 20211122
